FAERS Safety Report 6148701-1 (Version None)
Quarter: 2009Q2

REPORT INFORMATION
  Report Type: 
  Country: None (occurrence: None)
  Receive Date: 20090406
  Receipt Date: 20090406
  Transmission Date: 20091009
  Serious: Yes (Death)
  Sender: FDA-Public Use
  Company Number: None

PATIENT
  Age: 50 Year
  Sex: Female
  Weight: 49.8957 kg

DRUGS (1)
  1. SINGULAIR [Suspect]
     Indication: ASTHMA EXERCISE INDUCED
     Dosage: 90 TABS DAILY -1 A DAY - PO, I HAVE RECORDS FOR 1 YEAR
     Route: 048
     Dates: start: 20070212, end: 20080113

REACTIONS (8)
  - ANTISOCIAL BEHAVIOUR [None]
  - APHONIA [None]
  - FATIGUE [None]
  - GASTROOESOPHAGEAL REFLUX DISEASE [None]
  - HYPOPHAGIA [None]
  - INFLUENZA LIKE ILLNESS [None]
  - MALAISE [None]
  - WEIGHT DECREASED [None]
